FAERS Safety Report 7116150-5 (Version None)
Quarter: 2010Q4

REPORT INFORMATION
  Report Type: 
  Country: None (occurrence: None)
  Receive Date: 20101122
  Receipt Date: 20101109
  Transmission Date: 20110411
  Serious: Yes (Other)
  Sender: FDA-Public Use
  Company Number: PHHY2010FR76290

PATIENT
  Sex: Male

DRUGS (5)
  1. EXJADE [Suspect]
     Indication: IRON OVERLOAD
     Dosage: 1625 MG, QD
     Dates: start: 20090202
  2. EXJADE [Suspect]
     Dosage: 500 MG, BID
     Dates: start: 20100204
  3. EXJADE [Suspect]
     Dosage: 1250 MG, QD
     Dates: start: 20090501
  4. EXJADE [Suspect]
     Dosage: 1500 MG, QD
  5. EXJADE [Suspect]
     Dosage: 1000 MG, QD
     Dates: end: 20091215

REACTIONS (4)
  - DIARRHOEA [None]
  - DRUG INEFFECTIVE [None]
  - GENERAL PHYSICAL HEALTH DETERIORATION [None]
  - WEIGHT DECREASED [None]
